FAERS Safety Report 14176709 (Version 1)
Quarter: 2017Q4

REPORT INFORMATION
  Report Type: Spontaneous
  Country: US (occurrence: None)
  Receive Date: 20171110
  Receipt Date: 20171110
  Transmission Date: 20180321
  Serious: Yes (Hospitalization)
  Sender: FDA-Public Use
  Company Number: None

PATIENT
  Age: 36 Year
  Sex: Male
  Weight: 106 kg

DRUGS (4)
  1. CARBOPLATIN. [Suspect]
     Active Substance: CARBOPLATIN
     Dates: end: 20171021
  2. TAXOL [Suspect]
     Active Substance: PACLITAXEL
  3. ETOPOSIDE (VP-16) [Suspect]
     Active Substance: ETOPOSIDE
     Dates: end: 20171021
  4. IFOSFAMIDE. [Suspect]
     Active Substance: IFOSFAMIDE
     Dates: end: 20171005

REACTIONS (7)
  - Candida infection [None]
  - Pneumoperitoneum [None]
  - Device related infection [None]
  - Body temperature increased [None]
  - Bacterial test positive [None]
  - Intestinal perforation [None]
  - Pelvic abscess [None]

NARRATIVE: CASE EVENT DATE: 20171104
